FAERS Safety Report 24982357 (Version 1)
Quarter: 2025Q1

REPORT INFORMATION
  Report Type: Spontaneous
  Country: CN (occurrence: CN)
  Receive Date: 20250218
  Receipt Date: 20250218
  Transmission Date: 20250409
  Serious: Yes (Life-Threatening)
  Sender: ROCHE
  Company Number: CN-BoehringerIngelheim-2025-BI-007792

PATIENT
  Age: 64 Year
  Sex: Male
  Weight: 60 kg

DRUGS (2)
  1. ALTEPLASE [Suspect]
     Active Substance: ALTEPLASE
     Indication: Cerebral infarction
     Route: 040
     Dates: start: 20250126
  2. ALTEPLASE [Suspect]
     Active Substance: ALTEPLASE
     Route: 040
     Dates: start: 20250126

REACTIONS (2)
  - Cerebral haemorrhage [Recovering/Resolving]
  - Paranasal sinus inflammation [Unknown]

NARRATIVE: CASE EVENT DATE: 20250128
